FAERS Safety Report 4874895-1 (Version None)
Quarter: 2006Q1

REPORT INFORMATION
  Report Type: 
  Country: None (occurrence: None)
  Receive Date: 20060105
  Receipt Date: 20051222
  Transmission Date: 20060701
  Serious: Yes (Hospitalization, Other)
  Sender: FDA-Public Use
  Company Number: USA-2004-0016325

PATIENT
  Age: 43 Year
  Sex: Male
  Weight: 92.1 kg

DRUGS (11)
  1. OXYCONTIN [Suspect]
     Indication: PAIN MANAGEMENT
  2. VIAGRA [Concomitant]
  3. EFFEXOR [Concomitant]
  4. BEXTRA [Concomitant]
  5. WELLBUTRIN [Concomitant]
  6. VICODIN [Concomitant]
  7. ZOCOR [Concomitant]
  8. NEURONTIN [Concomitant]
  9. PERCOCET [Concomitant]
  10. ELAVIL [Concomitant]
  11. PROZAC [Concomitant]

REACTIONS (48)
  - AGITATION [None]
  - ANGER [None]
  - ANHEDONIA [None]
  - ANOREXIA [None]
  - ANXIETY [None]
  - ARTHRALGIA [None]
  - ARTHRITIS [None]
  - ASTHENIA [None]
  - CONSTIPATION [None]
  - CRYING [None]
  - DECREASED APPETITE [None]
  - DELUSIONAL DISORDER, UNSPECIFIED TYPE [None]
  - DEPRESSED MOOD [None]
  - DEPRESSION [None]
  - DERMATITIS CONTACT [None]
  - DISTURBANCE IN ATTENTION [None]
  - DRUG DEPENDENCE [None]
  - DRUG INEFFECTIVE [None]
  - DRUG WITHDRAWAL SYNDROME [None]
  - ECCHYMOSIS [None]
  - FALL [None]
  - FATIGUE [None]
  - FEELING ABNORMAL [None]
  - FEELING GUILTY [None]
  - HYPERHIDROSIS [None]
  - HYPERSOMNIA [None]
  - INADEQUATE ANALGESIA [None]
  - INCREASED APPETITE [None]
  - INSOMNIA [None]
  - JOINT SWELLING [None]
  - LIBIDO DECREASED [None]
  - MEMORY IMPAIRMENT [None]
  - NAUSEA [None]
  - NEGATIVE THOUGHTS [None]
  - NIGHT SWEATS [None]
  - NIGHTMARE [None]
  - NOCTURIA [None]
  - OBSESSIVE-COMPULSIVE DISORDER [None]
  - PAIN [None]
  - PARANOIA [None]
  - PERSONALITY CHANGE [None]
  - RASH [None]
  - SLEEP DISORDER [None]
  - SOMNOLENCE [None]
  - SUICIDAL IDEATION [None]
  - THERAPY NON-RESPONDER [None]
  - TREMOR [None]
  - VISION BLURRED [None]
